FAERS Safety Report 4866391-2 (Version None)
Quarter: 2005Q4

REPORT INFORMATION
  Report Type: 
  Country: None (occurrence: None)
  Receive Date: 20051227
  Receipt Date: 20051201
  Transmission Date: 20060501
  Serious: Yes (Hospitalization, Other)
  Sender: FDA-Public Use
  Company Number: US-MERCK-0512USA00233

PATIENT
  Age: 65 Year
  Sex: Female
  Weight: 63 kg

DRUGS (5)
  1. FOSAMAX [Suspect]
     Indication: OSTEOPOROSIS
     Route: 048
     Dates: start: 19950101
  2. FOSAMAX [Suspect]
     Route: 048
  3. IBUPROFEN [Concomitant]
     Route: 065
  4. NAPROXEN [Concomitant]
     Route: 065
  5. OXYBUTYNIN [Concomitant]
     Route: 065

REACTIONS (2)
  - BONE DENSITY DECREASED [None]
  - HUMERUS FRACTURE [None]
